FAERS Safety Report 5677927-6 (Version None)
Quarter: 2008Q1

REPORT INFORMATION
  Report Type: 
  Country: None (occurrence: None)
  Receive Date: 20080325
  Receipt Date: 20080312
  Transmission Date: 20080703
  Serious: Yes (Death, Hospitalization)
  Sender: FDA-Public Use
  Company Number: GB-RANBAXY-2007RR-09560

PATIENT

DRUGS (1)
  1. IBUPROFEN [Suspect]
     Dosage: 469 MG/KG, UNK

REACTIONS (6)
  - APNOEA [None]
  - ASPIRATION [None]
  - CONVULSION [None]
  - OVERDOSE [None]
  - PNEUMONIA ASPIRATION [None]
  - SEPSIS [None]
